FAERS Safety Report 7132393-9 (Version None)
Quarter: 2010Q4

REPORT INFORMATION
  Report Type: 
  Country: None (occurrence: None)
  Receive Date: 20101202
  Receipt Date: 20101125
  Transmission Date: 20110411
  Serious: Yes (Hospitalization, Other)
  Sender: FDA-Public Use
  Company Number: CA-ROCHE-714621

PATIENT
  Sex: Male
  Weight: 68 kg

DRUGS (11)
  1. BEVACIZUMAB [Suspect]
     Indication: GLIOBLASTOMA
     Dosage: FORM:INFUSION
     Route: 042
     Dates: start: 20100625
  2. BEVACIZUMAB [Suspect]
     Dosage: TEMPORARILY INTERRUPTED.
     Route: 042
     Dates: start: 20100720, end: 20101112
  3. CLOBAZAM [Concomitant]
     Dosage: 10 MG AT 10 AM AND 30 MG AT 10 PM
     Route: 048
  4. DIVALPROEX SODIUM [Concomitant]
     Dosage: 500 MG AT 10 AM AND 750 MG AT 10 PM
     Route: 048
  5. RABEPRAZOLE SODIUM [Concomitant]
     Route: 048
  6. DEXAMETHASONE [Concomitant]
     Route: 048
  7. FLAXSEED [Concomitant]
     Dosage: DRUG:FLAXSEED OIL
  8. CALCIUM [Concomitant]
  9. OMEGA [Concomitant]
     Dosage: DRUG: OMEGA 3
  10. HYDROCHLOROTHIAZIDE [Concomitant]
     Dosage: AS PER THE REQUIREMENT
     Route: 048
  11. INSULIN [Concomitant]

REACTIONS (6)
  - HAEMORRHAGE [None]
  - HYPERGLYCAEMIA [None]
  - LIVER ABSCESS [None]
  - MALIGNANT NEOPLASM PROGRESSION [None]
  - PULMONARY OEDEMA [None]
  - WOUND [None]
